FAERS Safety Report 5050089-4 (Version None)
Quarter: 2006Q2

REPORT INFORMATION
  Report Type: 
  Country: None (occurrence: None)
  Receive Date: 20060614
  Receipt Date: 20060414
  Transmission Date: 20061013
  Serious: Yes (Other)
  Sender: FDA-Public Use
  Company Number: 444567

PATIENT
  Age: 42 Year
  Sex: Female

DRUGS (2)
  1. BONIVA [Suspect]
     Indication: OSTEOPOROSIS
     Dosage: 150 MG   1 PER MONTH    ORAL
     Route: 048
     Dates: start: 20060411, end: 20060411
  2. MULTIPLE OTHER MEDICATIONS (GENERIC UNKNOWN) [Concomitant]

REACTIONS (1)
  - CHEST DISCOMFORT [None]
